FAERS Safety Report 8776953 (Version 1)
Quarter: 2012Q4

REPORT INFORMATION
  Report Type: 
  Country: US (occurrence: US)
  Receive Date: 20120911
  Receipt Date: 20120911
  Transmission Date: 20130627
  Serious: Yes (Other)
  Sender: FDA-Public Use
  Company Number: US-GLAXOSMITHKLINE-A0992007A

PATIENT
  Age: 84 Year
  Sex: Female

DRUGS (6)
  1. WELLBUTRIN SR [Suspect]
     Indication: DEPRESSION
     Route: 048
     Dates: start: 2010, end: 20120824
  2. ZYPREXA [Suspect]
     Indication: HALLUCINATION
  3. LEXAPRO [Concomitant]
  4. GALANTAMINE [Concomitant]
  5. BLOOD PRESSURE MEDICATION [Concomitant]
  6. HEART MEDICATION [Concomitant]

REACTIONS (2)
  - Hallucination [Not Recovered/Not Resolved]
  - Heart rate decreased [Unknown]
